FAERS Safety Report 6328875-X (Version None)
Quarter: 2009Q3

REPORT INFORMATION
  Report Type: 
  Country: None (occurrence: None)
  Receive Date: 20090824
  Receipt Date: 20090824
  Transmission Date: 20100115
  Serious: No
  Sender: FDA-Public Use
  Company Number: None

PATIENT
  Age: 38 Year
  Sex: Male
  Weight: 72.5755 kg

DRUGS (4)
  1. ZICAM, SWABS ZICAM [Suspect]
     Indication: INFLUENZA
     Dosage: WHEN A COLD STARTED ONCE DAILY NASAL
     Route: 045
     Dates: start: 20071205, end: 20071210
  2. ZICAM, SWABS ZICAM [Suspect]
     Indication: NASOPHARYNGITIS
     Dosage: WHEN A COLD STARTED ONCE DAILY NASAL
     Route: 045
     Dates: start: 20071205, end: 20071210
  3. ZICAM NASAL GEL ZICAM [Suspect]
     Indication: INFLUENZA
     Dosage: WHEN A COLD STARTED ONCE DAILY NASAL
     Route: 045
     Dates: start: 20080106, end: 20090308
  4. ZICAM NASAL GEL ZICAM [Suspect]
     Indication: NASOPHARYNGITIS
     Dosage: WHEN A COLD STARTED ONCE DAILY NASAL
     Route: 045
     Dates: start: 20080106, end: 20090308

REACTIONS (4)
  - AGEUSIA [None]
  - ANOSMIA [None]
  - NASAL DISCOMFORT [None]
  - RHINORRHOEA [None]
